FAERS Safety Report 25831797 (Version 1)
Quarter: 2025Q3

REPORT INFORMATION
  Report Type: Report from Study
  Country: EU (occurrence: EU)
  Receive Date: 20250922
  Receipt Date: 20250922
  Transmission Date: 20251020
  Serious: Yes (Hospitalization, Other)
  Sender: NOVARTIS
  Company Number: EU-002147023-NVSC2025DE140422

PATIENT
  Age: 43 Year
  Sex: Male

DRUGS (1)
  1. COSENTYX [Suspect]
     Active Substance: SECUKINUMAB
     Indication: Psoriasis
     Route: 058
     Dates: start: 20240214, end: 20240601

REACTIONS (22)
  - Crohn^s disease [Recovered/Resolved with Sequelae]
  - Appendicitis [Unknown]
  - Leukoencephalopathy [Unknown]
  - Colitis [Unknown]
  - Terminal ileitis [Unknown]
  - Colitis ulcerative [Unknown]
  - Hypokalaemia [Unknown]
  - Inflammatory bowel disease [Unknown]
  - Pyrexia [Recovered/Resolved]
  - Abdominal pain [Unknown]
  - Diarrhoea [Recovering/Resolving]
  - Haematochezia [Recovered/Resolved]
  - Weight decreased [Unknown]
  - Intestinal barrier dysfunction [Unknown]
  - Gastrointestinal inflammation [Unknown]
  - Rectal lesion [Unknown]
  - Gastrointestinal mucosa hyperaemia [Unknown]
  - Pelvic fluid collection [Unknown]
  - Normochromic normocytic anaemia [Unknown]
  - Staphylococcal infection [Unknown]
  - Duodenitis [Unknown]
  - Gastritis [Unknown]

NARRATIVE: CASE EVENT DATE: 20240101
